FAERS Safety Report 12800226 (Version 1)
Quarter: 2016Q3

REPORT INFORMATION
  Report Type: Spontaneous
  Country: US (occurrence: US)
  Receive Date: 20160930
  Receipt Date: 20160930
  Transmission Date: 20161109
  Serious: No
  Sender: FDA-Public Use
  Company Number: US-IMPAX LABORATORIES, INC-2016-IPXL-00640

PATIENT
  Sex: Female

DRUGS (3)
  1. ESTRACE VAGINAL [Concomitant]
     Indication: HORMONE REPLACEMENT THERAPY
     Dosage: UNK
     Route: 065
     Dates: start: 201406
  2. METHYLPHENIDATE HYDROCHLORIDE. [Suspect]
     Active Substance: METHYLPHENIDATE HYDROCHLORIDE
     Indication: ATTENTION DEFICIT/HYPERACTIVITY DISORDER
     Dosage: 10 MG, 2 /DAY (1 TABLET IN MORNING, 1 TABLET IN AFTERNOON AS NEEDED)
     Route: 048
     Dates: start: 2016
  3. SYNTHROID [Concomitant]
     Active Substance: LEVOTHYROXINE SODIUM
     Indication: HYPOTHYROIDISM
     Dosage: 112 ?G, UNK
     Route: 065

REACTIONS (1)
  - Drug ineffective [Not Recovered/Not Resolved]

NARRATIVE: CASE EVENT DATE: 2016
